FAERS Safety Report 9103460 (Version 2)
Quarter: 2013Q2

REPORT INFORMATION
  Report Type: Spontaneous
  Country: US (occurrence: US)
  Receive Date: 20130219
  Receipt Date: 20130401
  Transmission Date: 20140414
  Serious: Yes (Death, Hospitalization, Disabling)
  Sender: FDA-Public Use
  Company Number: US-GLAXOSMITHKLINE-A1012542A

PATIENT
  Age: 68 Year
  Sex: Female

DRUGS (5)
  1. ARIXTRA [Suspect]
     Indication: PULMONARY EMBOLISM
     Dosage: 7.5MG SEE DOSAGE TEXT
     Route: 058
     Dates: start: 20120523, end: 20130108
  2. HERCEPTIN [Suspect]
     Indication: BREAST CANCER
  3. NAVELBINE [Suspect]
     Indication: BREAST CANCER
     Route: 065
  4. DURATUSS [Concomitant]
  5. CALCIUM SUPPLEMENT [Concomitant]

REACTIONS (4)
  - Breast cancer metastatic [Fatal]
  - Neutropenia [Fatal]
  - Asthenia [Unknown]
  - Abasia [Unknown]
